FAERS Safety Report 24551555 (Version 2)
Quarter: 2024Q4

REPORT INFORMATION
  Report Type: Spontaneous
  Country: CA (occurrence: CA)
  Receive Date: 20241026
  Receipt Date: 20241206
  Transmission Date: 20250115
  Serious: Yes (Hospitalization, Other)
  Sender: AUROBINDO
  Company Number: CA-AUROBINDO-AUR-APL-2024-037952

PATIENT
  Age: 40 Year
  Sex: Female

DRUGS (9)
  1. LURASIDONE [Suspect]
     Active Substance: LURASIDONE
     Indication: Persecutory delusion
     Dosage: UNK
     Route: 065
  2. ZIPRASIDONE [Suspect]
     Active Substance: ZIPRASIDONE
     Indication: Persecutory delusion
     Dosage: 40 MILLIGRAM, TWO TIMES A DAY
     Route: 065
  3. ZIPRASIDONE [Suspect]
     Active Substance: ZIPRASIDONE
     Dosage: 60 MILLIGRAM, TWO TIMES A DAY
     Route: 065
  4. ADALIMUMAB [Suspect]
     Active Substance: ADALIMUMAB
     Indication: Ankylosing spondylitis
     Dosage: UNK UNK, EVERY WEEK
     Route: 065
  5. ADALIMUMAB [Suspect]
     Active Substance: ADALIMUMAB
     Dosage: UNK
     Route: 058
  6. DIMENHYDRINATE [Suspect]
     Active Substance: DIMENHYDRINATE
     Indication: Anxiety
     Dosage: 750 MILLIGRAM, DAILY,HIGH DOSE,FROM 20 YEARS
     Route: 065
  7. ZUCLOPENTHIXOL [Suspect]
     Active Substance: ZUCLOPENTHIXOL
     Indication: Persecutory delusion
     Dosage: 10 MILLIGRAM, DAILY
     Route: 065
  8. BREXPIPRAZOLE [Suspect]
     Active Substance: BREXPIPRAZOLE
     Indication: Persecutory delusion
     Dosage: UNK
     Route: 065
  9. ACETAMINOPHEN\METHOCARBAMOL [Suspect]
     Active Substance: ACETAMINOPHEN\METHOCARBAMOL
     Indication: Product used for unknown indication
     Dosage: UNK
     Route: 065

REACTIONS (6)
  - Paranoia [Unknown]
  - Cognitive disorder [Unknown]
  - Suicidal ideation [Unknown]
  - Drug abuse [Unknown]
  - Overdose [Unknown]
  - Depression [Unknown]
